APPROVED DRUG PRODUCT: ABREVA
Active Ingredient: DOCOSANOL
Strength: 10%
Dosage Form/Route: CREAM;TOPICAL
Application: N020941 | Product #001
Applicant: HALEON US HOLDINGS LLC
Approved: Jul 25, 2000 | RLD: Yes | RS: Yes | Type: OTC